FAERS Safety Report 9838864 (Version 3)
Quarter: 2014Q2

REPORT INFORMATION
  Report Type: Spontaneous
  Country: US (occurrence: US)
  Receive Date: 20140123
  Receipt Date: 20140529
  Transmission Date: 20141212
  Serious: Yes (Hospitalization)
  Sender: FDA-Public Use
  Company Number: US-B.I. PHARMACEUTICALS,INC./RIDGEFIELD-2014-BI-02984BP

PATIENT
  Age: 79 Year
  Sex: Male
  Weight: 91.63 kg

DRUGS (15)
  1. PRADAXA [Suspect]
     Indication: ANTICOAGULANT THERAPY
     Dosage: 300 MG
     Route: 065
     Dates: start: 20110517, end: 20130114
  2. PRADAXA [Suspect]
     Indication: ATRIAL FIBRILLATION
  3. ALPHA-LIPOIC ACID [Concomitant]
     Indication: NEUROPATHY PERIPHERAL
     Dosage: 600 MG
     Route: 065
  4. TAMOXIFEN [Concomitant]
     Dosage: 20 MG
     Route: 065
  5. MAGNESIUM SULFATE [Concomitant]
     Dosage: 2 G
     Route: 065
  6. FUROSEMIDE [Concomitant]
     Dosage: 20MG IN THE MORNING 80 MG IN THE NIGHTTIME
     Route: 065
  7. CALCIUM GLUCONATE [Concomitant]
     Dosage: 1500 MG
     Route: 065
  8. CINNAMON [Concomitant]
     Dosage: 4000 MG
     Route: 065
  9. POTASSIUM CHLORIDE [Concomitant]
     Dosage: 40 MEQ
     Route: 065
  10. FOLIC ACID [Concomitant]
     Dosage: 1 G
     Route: 065
  11. SIMVASTATIN [Concomitant]
     Dosage: 20 MG
     Route: 065
  12. DIGOXIN [Concomitant]
     Dosage: 1 ANZ
     Route: 065
  13. LOSARTAN [Concomitant]
     Dosage: 1 ANZ
     Route: 065
  14. MULTIVITAMINS [Concomitant]
     Dosage: 1 ANZ
     Route: 065
  15. ATENOLOL [Concomitant]
     Route: 065

REACTIONS (4)
  - Gastrointestinal haemorrhage [Unknown]
  - Coagulopathy [Unknown]
  - Anaemia [Unknown]
  - Epistaxis [Unknown]
